FAERS Safety Report 19195253 (Version 1)
Quarter: 2021Q2

REPORT INFORMATION
  Report Type: Spontaneous
  Country: JP (occurrence: JP)
  Receive Date: 20210429
  Receipt Date: 20210429
  Transmission Date: 20210717
  Serious: Yes (Life-Threatening, Hospitalization)
  Sender: FDA-Public Use
  Company Number: JP-PFIZER INC-2021433448

PATIENT
  Age: 44 Year
  Sex: Female

DRUGS (13)
  1. ZOTEPINE [Suspect]
     Active Substance: ZOTEPINE
     Dosage: 79 DF
  2. LAMOTRIGINE. [Suspect]
     Active Substance: LAMOTRIGINE
     Dosage: 72 DF
  3. LAMICTAL [Suspect]
     Active Substance: LAMOTRIGINE
     Dosage: 2 DF
  4. MIRTAZAPINE. [Suspect]
     Active Substance: MIRTAZAPINE
     Dosage: 2 DF
  5. QUETIAPINE FUMARATE. [Suspect]
     Active Substance: QUETIAPINE FUMARATE
     Dosage: 9 DF
  6. ARIPIPRAZOLE. [Suspect]
     Active Substance: ARIPIPRAZOLE
     Dosage: 24 DF
  7. CLONAZEPAM. [Suspect]
     Active Substance: CLONAZEPAM
     Dosage: 70 DF
  8. ALPRAZOLAM. [Suspect]
     Active Substance: ALPRAZOLAM
     Dosage: 18 DF
  9. TRIAZOLAM. [Suspect]
     Active Substance: TRIAZOLAM
     Dosage: 20 DF
  10. LEVOMEPROMAZINE MALEATE [Suspect]
     Active Substance: LEVOMEPROMAZINE MALEATE
     Dosage: 4 DF
  11. CLONAZEPAM. [Suspect]
     Active Substance: CLONAZEPAM
     Dosage: 24 DF
  12. FLUVOXAMINE MALEATE. [Suspect]
     Active Substance: FLUVOXAMINE MALEATE
     Dosage: 66 DF
  13. BREXPIPRAZOLE [Suspect]
     Active Substance: BREXPIPRAZOLE
     Dosage: 8 DF

REACTIONS (3)
  - Toxicity to various agents [Unknown]
  - Altered state of consciousness [Unknown]
  - Overdose [Unknown]
